FAERS Safety Report 11848896 (Version 1)
Quarter: 2015Q4

REPORT INFORMATION
  Report Type: Spontaneous
  Country: US (occurrence: None)
  Receive Date: 20151217
  Receipt Date: 20151217
  Transmission Date: 20160305
  Serious: No
  Sender: FDA-Public Use
  Company Number: None

PATIENT
  Age: 51 Year
  Sex: Female

DRUGS (1)
  1. FORTEO [Suspect]
     Active Substance: TERIPARATIDE
     Indication: OSTEOPOROSIS
     Route: 058
     Dates: start: 20151028

REACTIONS (5)
  - Palpitations [None]
  - Fatigue [None]
  - Swollen tongue [None]
  - Pain [None]
  - Tinnitus [None]

NARRATIVE: CASE EVENT DATE: 20151028
